FAERS Safety Report 9383725 (Version 1)
Quarter: 2013Q3

REPORT INFORMATION
  Report Type: Spontaneous
  Country: US (occurrence: US)
  Receive Date: 20130704
  Receipt Date: 20130704
  Transmission Date: 20140515
  Serious: No
  Sender: FDA-Public Use
  Company Number: US-ASTRAZENECA-2013SE42293

PATIENT
  Age: 90 Year
  Sex: Male
  Weight: 74.8 kg

DRUGS (12)
  1. SYMBICORT [Suspect]
     Indication: CHRONIC OBSTRUCTIVE PULMONARY DISEASE
     Dosage: 2 PUFFS 320/9 MCG BID
     Route: 055
  2. TOPROL XL [Suspect]
     Route: 065
  3. TURDOZA [Concomitant]
  4. LEVOTHYROXINE [Concomitant]
     Dosage: 60MCG DAILY
  5. LASIX [Concomitant]
  6. ASPRIRIN [Concomitant]
  7. GLYBURIDE [Concomitant]
     Dosage: 7.5 DAILY
  8. ATORVASTATIN [Concomitant]
  9. NORVASC [Concomitant]
     Dosage: 2.5 DAILY
  10. MIRALAX [Concomitant]
  11. PROBIOTICS [Concomitant]
  12. ZITHROMAX [Concomitant]

REACTIONS (1)
  - Blood pressure increased [Unknown]
